FAERS Safety Report 23861752 (Version 1)
Quarter: 2024Q2

REPORT INFORMATION
  Report Type: Report from Study
  Country: US (occurrence: US)
  Receive Date: 20240516
  Receipt Date: 20240516
  Transmission Date: 20240716
  Serious: No
  Sender: FDA-Public Use
  Company Number: US-002147023-NVSC2023US100342

PATIENT
  Age: 12 Year
  Sex: Male

DRUGS (10)
  1. OMNITROPE [Suspect]
     Active Substance: SOMATROPIN
     Dosage: 0.42 MG, QD (VIAL)
     Route: 065
  2. OMNITROPE [Suspect]
     Active Substance: SOMATROPIN
     Dosage: 0.42 MG, QD (VIAL)
     Route: 065
  3. OMNITROPE [Suspect]
     Active Substance: SOMATROPIN
     Indication: Product used for unknown indication
     Dosage: 0.42 ML, QD
     Route: 058
  4. OMNITROPE [Suspect]
     Active Substance: SOMATROPIN
     Indication: Product used for unknown indication
     Dosage: 0.42 ML, QD
     Route: 058
  5. OMNITROPE [Suspect]
     Active Substance: SOMATROPIN
     Dosage: 0.42 ML, QD
     Route: 058
  6. OMNITROPE [Suspect]
     Active Substance: SOMATROPIN
     Dosage: 0.42 ML, QD
     Route: 058
  7. OMNITROPE [Suspect]
     Active Substance: SOMATROPIN
     Dosage: 5.8 MG (VIAL) (STRENGTH: 5.8MG)
     Route: 065
  8. OMNITROPE [Suspect]
     Active Substance: SOMATROPIN
     Dosage: 5.8 MG (VIAL) (STRENGTH: 5.8MG)
     Route: 065
  9. OMNITROPE [Suspect]
     Active Substance: SOMATROPIN
     Dosage: 10 MG, QD
     Route: 058
  10. OMNITROPE [Suspect]
     Active Substance: SOMATROPIN
     Dosage: 10 MG, QD
     Route: 058

REACTIONS (5)
  - Device breakage [Unknown]
  - Incorrect dose administered [Unknown]
  - Fatigue [Unknown]
  - Injection site pain [Unknown]
  - Product use issue [Unknown]

NARRATIVE: CASE EVENT DATE: 20230426
